FAERS Safety Report 22071478 (Version 2)
Quarter: 2023Q2

REPORT INFORMATION
  Report Type: Spontaneous
  Country: FR (occurrence: FR)
  Receive Date: 20230307
  Receipt Date: 20230425
  Transmission Date: 20230721
  Serious: Yes (Other)
  Sender: FDA-Public Use
  Company Number: None

PATIENT
  Age: 64 Year
  Sex: Female

DRUGS (19)
  1. IRINOTECAN [Suspect]
     Active Substance: IRINOTECAN
     Indication: Adenocarcinoma pancreas
     Route: 042
     Dates: start: 20230210, end: 20230210
  2. IRINOTECAN [Suspect]
     Active Substance: IRINOTECAN
     Dosage: ROA-20045000
     Route: 042
     Dates: start: 20230127
  3. OXALIPLATIN [Suspect]
     Active Substance: OXALIPLATIN
     Indication: Adenocarcinoma pancreas
     Dosage: C1
     Route: 042
     Dates: start: 20230127, end: 20230127
  4. OXALIPLATIN [Suspect]
     Active Substance: OXALIPLATIN
     Dosage: C2
     Route: 042
     Dates: start: 20230210, end: 20230210
  5. CANDESARTAN CILEXETIL [Concomitant]
     Active Substance: CANDESARTAN CILEXETIL
     Indication: Hypertension
     Dosage: ROA-20053000
     Route: 048
  6. FLUOROURACIL [Concomitant]
     Active Substance: FLUOROURACIL
     Indication: Adenocarcinoma pancreas
     Dosage: ROA-20045000
     Route: 042
     Dates: start: 20230127
  7. EMEND [Concomitant]
     Active Substance: APREPITANT
     Indication: Prophylaxis of nausea and vomiting
     Dosage: ROA-20053000
     Route: 048
     Dates: start: 20230127
  8. PRIMPERAN [Concomitant]
     Active Substance: METOCLOPRAMIDE HYDROCHLORIDE
     Indication: Prophylaxis of nausea and vomiting
     Dosage: ROA-20053000
     Route: 048
     Dates: start: 20230127
  9. SKENAN L.P. 30 mg, prolonged-release microgranules in capsule [Concomitant]
     Indication: Pain
     Dosage: ROA-20053000
     Route: 048
  10. LEUCOVORIN [Concomitant]
     Active Substance: LEUCOVORIN
     Indication: Adenocarcinoma pancreas
     Dosage: ROA-20045000
     Route: 042
     Dates: start: 20230127
  11. ASPIRIN [Concomitant]
     Active Substance: ASPIRIN
     Indication: Cardiovascular event prophylaxis
     Route: 048
  12. JANUMET 50 mg/1000 mg, film-coated tablet [Concomitant]
     Indication: Diabetes mellitus
     Dosage: ROA-20053000
     Route: 048
  13. MORPHINE SULFATE [Concomitant]
     Active Substance: MORPHINE SULFATE
     Indication: Pain
     Dosage: ROA-20053000
     Route: 048
  14. POTASSIUM CHLORIDE [Concomitant]
     Active Substance: POTASSIUM CHLORIDE
     Indication: Mineral supplementation
     Dosage: ROA-20053000
     Route: 048
  15. SOLUPRED [Concomitant]
     Indication: Chemotherapy side effect prophylaxis
     Route: 048
     Dates: start: 20230127
  16. LOPERAMIDE HYDROCHLORIDE [Concomitant]
     Active Substance: LOPERAMIDE HYDROCHLORIDE
     Indication: Diarrhoea
     Route: 048
     Dates: start: 20230127
  17. PELMEG 6 mg, solution for injection in pre-filled syringe [Concomitant]
     Indication: Chemotherapy side effect prophylaxis
     Dosage: ROA-20053000
     Route: 048
     Dates: start: 20230127
  18. LEVOTHYROXINE SODIUM [Concomitant]
     Active Substance: LEVOTHYROXINE SODIUM
     Indication: Hypothyroidism
     Dosage: ROA-20053000
     Route: 048
  19. ZOPHREN 8 mg, film-coated tablet [Concomitant]
     Indication: Prophylaxis of nausea and vomiting
     Dosage: ROA-20053000
     Route: 048
     Dates: start: 20230127

REACTIONS (2)
  - Hypoaesthesia [Recovered/Resolved]
  - Gait disturbance [Recovered/Resolved]

NARRATIVE: CASE EVENT DATE: 20230210
